FAERS Safety Report 15152858 (Version 1)
Quarter: 2018Q3

REPORT INFORMATION
  Report Type: Spontaneous
  Country: US (occurrence: US)
  Receive Date: 20180717
  Receipt Date: 20180717
  Transmission Date: 20181010
  Serious: No
  Sender: FDA-Public Use
  Company Number: US-APOTEX-2018AP015515

PATIENT
  Age: 59 Year
  Sex: Female

DRUGS (3)
  1. FLUTICASONE PROPIONATE NASAL SPRAY USP [Suspect]
     Active Substance: FLUTICASONE PROPIONATE
     Indication: NASOPHARYNGITIS
     Dosage: 50 ?G, UNK
     Route: 045
     Dates: start: 20180102, end: 20180601
  2. FLUTICASONE PROPIONATE NASAL SPRAY USP [Suspect]
     Active Substance: FLUTICASONE PROPIONATE
     Indication: RHINORRHOEA
  3. INSULIN [Concomitant]
     Active Substance: INSULIN NOS
     Indication: PRODUCT USED FOR UNKNOWN INDICATION
     Dosage: UNK
     Route: 065

REACTIONS (8)
  - Malaise [Not Recovered/Not Resolved]
  - Dyspnoea [Unknown]
  - Vomiting [Unknown]
  - Product use issue [Unknown]
  - Drug ineffective [Unknown]
  - Retching [Unknown]
  - Product contamination physical [Unknown]
  - Cough [Not Recovered/Not Resolved]

NARRATIVE: CASE EVENT DATE: 201801
